FAERS Safety Report 8718958 (Version 2)
Quarter: 2013Q4

REPORT INFORMATION
  Report Type: Spontaneous
  Country: US (occurrence: US)
  Receive Date: 20120811
  Receipt Date: 20131101
  Transmission Date: 20140711
  Serious: No
  Sender: FDA-Public Use
  Company Number: US-009507513-1208USA000431

PATIENT
  Sex: Female

DRUGS (1)
  1. NUVARING [Suspect]
     Indication: MENSTRUAL DISORDER
     Dosage: 1 DF, QM
     Route: 067
     Dates: start: 20120710

REACTIONS (2)
  - Metrorrhagia [Not Recovered/Not Resolved]
  - Off label use [Unknown]
